FAERS Safety Report 9706260 (Version 3)
Quarter: 2014Q1

REPORT INFORMATION
  Report Type: Report from Study
  Country: US (occurrence: US)
  Receive Date: 20131125
  Receipt Date: 20140108
  Transmission Date: 20141002
  Serious: Yes (Death, Hospitalization)
  Sender: FDA-Public Use
  Company Number: US-ROCHE-1308958

PATIENT
  Sex: Female

DRUGS (7)
  1. LUCENTIS [Suspect]
     Indication: AGE-RELATED MACULAR DEGENERATION
     Route: 065
  2. CILOSTAZOL [Concomitant]
     Route: 048
  3. CITRACAL [Concomitant]
  4. BABY ASPIRIN [Concomitant]
  5. TYLENOL [Concomitant]
  6. OMEPRAZOLE [Concomitant]
     Route: 048
  7. DIGOXIN [Concomitant]
     Indication: HEART RATE IRREGULAR
     Route: 048

REACTIONS (4)
  - Death [Fatal]
  - Urinary tract infection [Unknown]
  - Pneumonia [Unknown]
  - Asthenia [Unknown]
